FAERS Safety Report 7611455-3 (Version None)
Quarter: 2011Q3

REPORT INFORMATION
  Report Type: 
  Country: None (occurrence: None)
  Receive Date: 20110715
  Receipt Date: 20110711
  Transmission Date: 20111222
  Serious: Yes (Hospitalization, Other)
  Sender: FDA-Public Use
  Company Number: AU-ROCHE-789234

PATIENT
  Age: 53 Year
  Sex: Female

DRUGS (2)
  1. PEGASYS [Suspect]
     Indication: HEPATIC CIRRHOSIS
     Route: 065
  2. RIBAVIRIN [Suspect]
     Indication: HEPATIC CIRRHOSIS
     Route: 065

REACTIONS (2)
  - RESPIRATORY ARREST [None]
  - PHARYNGEAL ABSCESS [None]
